FAERS Safety Report 10233867 (Version 1)
Quarter: 2014Q2

REPORT INFORMATION
  Report Type: Spontaneous
  Country: US (occurrence: US)
  Receive Date: 20140612
  Receipt Date: 20140612
  Transmission Date: 20141212
  Serious: Yes (Other)
  Sender: FDA-Public Use
  Company Number: US-MYLANLABS-2014S1013259

PATIENT
  Sex: Female

DRUGS (3)
  1. CIMETIDINE TABLETS, USP [Suspect]
     Indication: PROPHYLAXIS
     Route: 048
     Dates: start: 1999
  2. NAPROXEN [Concomitant]
  3. MUSCLE RELAXANTS [Concomitant]

REACTIONS (3)
  - Colorectal cancer [Recovered/Resolved]
  - Ocular icterus [Not Recovered/Not Resolved]
  - Breast discharge [Not Recovered/Not Resolved]
